FAERS Safety Report 5289552-X (Version None)
Quarter: 2007Q1

REPORT INFORMATION
  Report Type: 
  Country: None (occurrence: None)
  Receive Date: 20070118
  Receipt Date: 20061016
  Transmission Date: 20070707
  Serious: Yes (Other)
  Sender: FDA-Public Use
  Company Number: HQWYE608313SEP06

PATIENT
  Age: 69 Year
  Sex: Female
  Weight: 68.1 kg

DRUGS (3)
  1. ADVIL PM [Suspect]
     Indication: FIBROMYALGIA
     Dosage: 2 CAPLETS AT BEDTIME, ORAL
     Route: 048
     Dates: start: 20060801, end: 20060906
  2. LEVOXYL [Concomitant]
  3. VYTORIN [Concomitant]

REACTIONS (1)
  - DRUG EFFECT DECREASED [None]
